FAERS Safety Report 20167337 (Version 1)
Quarter: 2021Q4

REPORT INFORMATION
  Report Type: Spontaneous
  Country: CA (occurrence: None)
  Receive Date: 20211208
  Receipt Date: 20211208
  Transmission Date: 20220303
  Serious: Yes (Hospitalization)
  Sender: FDA-Public Use
  Company Number: None

PATIENT
  Age: 26 Year
  Sex: Male
  Weight: 81 kg

DRUGS (1)
  1. ROGAINE [Suspect]
     Active Substance: MINOXIDIL

REACTIONS (4)
  - Application site irritation [None]
  - Application site pain [None]
  - Heart rate increased [None]
  - Erectile dysfunction [None]

NARRATIVE: CASE EVENT DATE: 20211008
